FAERS Safety Report 21550724 (Version 1)
Quarter: 2022Q4

REPORT INFORMATION
  Report Type: Spontaneous
  Country: US (occurrence: US)
  Receive Date: 20221103
  Receipt Date: 20221103
  Transmission Date: 20230112
  Serious: No
  Sender: FDA-Public Use
  Company Number: US-PERRIGO-21US030373

PATIENT
  Age: 27 Year
  Sex: Female
  Weight: 68.027 kg

DRUGS (1)
  1. FAMOTIDINE [Suspect]
     Active Substance: FAMOTIDINE
     Indication: Wrong product administered
     Dosage: 60 MG, SINGLE
     Route: 048
     Dates: start: 20211029, end: 20211029

REACTIONS (2)
  - Wrong product administered [Recovered/Resolved]
  - Expired product administered [Recovered/Resolved]

NARRATIVE: CASE EVENT DATE: 20211029
